FAERS Safety Report 5573072-9 (Version None)
Quarter: 2007Q4

REPORT INFORMATION
  Report Type: 
  Country: None (occurrence: None)
  Receive Date: 20071220
  Receipt Date: 20071127
  Transmission Date: 20080405
  Serious: Yes (Other)
  Sender: FDA-Public Use
  Company Number: ENC200700201

PATIENT
  Age: 84 Year
  Sex: Male

DRUGS (8)
  1. ARGATROBAN [Suspect]
     Indication: THROMBOTIC STROKE
     Dosage: 60 MG, INTRAVENOUS, 30 MG
     Dates: start: 20071117, end: 20071118
  2. ARGATROBAN [Suspect]
     Indication: THROMBOTIC STROKE
     Dosage: 60 MG, INTRAVENOUS, 30 MG
     Dates: start: 20071118, end: 20071118
  3. RADICUT (EDARAVONE) [Concomitant]
  4. SOLCOSERYL (BLOOD, CALF, DEPROT., LMW PORTION) [Concomitant]
  5. GLYCENON (FRUCTOSE, GLYCEROL) [Concomitant]
  6. SOLULACT (CALCIUM CHLORIDE DIHYDRATE, POTASSIUM CHLORIDE, SODIUM CHLOR [Concomitant]
  7. PHYSIO (CALCIUM GLUCONATE, GLUCOSE, MAGNESIUM CHLORIDE ANHYDROUS, POTA [Concomitant]
  8. MECLOFENOXATE HYDROCHLORIDE (MECLOFENOXATE HYDROCHLORIDE) [Concomitant]

REACTIONS (1)
  - HAEMORRHAGIC CEREBRAL INFARCTION [None]
